FAERS Safety Report 5191549-5 (Version None)
Quarter: 2006Q4

REPORT INFORMATION
  Report Type: 
  Country: None (occurrence: None)
  Receive Date: 20061219
  Receipt Date: 20061206
  Transmission Date: 20070319
  Serious: Yes (Other)
  Sender: FDA-Public Use
  Company Number: 2005125286

PATIENT
  Age: 33 Year
  Sex: Female
  Weight: 46.2669 kg

DRUGS (3)
  1. DEPO-PROVERA [Suspect]
     Indication: CONTRACEPTION
     Dosage: 150 MG (150 MG, 1ST INJECTION, EVERY 3 MONTHS), INTRAMUSCULAR
     Route: 030
     Dates: start: 19940815, end: 19940815
  2. DEPO-PROVERA [Suspect]
     Indication: DRUG USE FOR UNKNOWN INDICATION
     Dosage: 150 MG (150 MG, LAST INJECTION), INTRAMUSCULAR
     Route: 030
     Dates: start: 20050511, end: 20050511
  3. DEPO-PROVERA [Suspect]

REACTIONS (4)
  - MULTIPLE FRACTURES [None]
  - OSTEOPENIA [None]
  - OSTEOPOROSIS [None]
  - SPINAL FRACTURE [None]
